FAERS Safety Report 4994429-0 (Version None)
Quarter: 2006Q1

REPORT INFORMATION
  Report Type: 
  Country: None (occurrence: None)
  Receive Date: 20060310
  Receipt Date: 20050304
  Transmission Date: 20060701
  Serious: Yes (Hospitalization)
  Sender: FDA-Public Use
  Company Number: 4791

PATIENT
  Age: 72 Year
  Sex: Female

DRUGS (7)
  1. POTASSIUM CHLORIDE [Suspect]
     Indication: CARDIAC FAILURE CONGESTIVE
     Dosage: 9 CAPSULES, PO, BID
     Route: 048
  2. LASIX [Concomitant]
  3. ZAROXOLYN [Concomitant]
  4. NAPROXEN [Concomitant]
  5. SYNTHROID [Concomitant]
  6. CARDIZEM CD [Concomitant]
  7. ASPIRIN [Concomitant]

REACTIONS (6)
  - ABDOMINAL PAIN UPPER [None]
  - INSOMNIA [None]
  - PAIN OF SKIN [None]
  - RASH PRURITIC [None]
  - STOMACH DISCOMFORT [None]
  - URTICARIA [None]
